APPROVED DRUG PRODUCT: TROVAN/ZITHROMAX COMPLIANCE PAK
Active Ingredient: AZITHROMYCIN DIHYDRATE; TROVAFLOXACIN MESYLATE
Strength: EQ 1GM BASE,N/A;N/A,EQ 100MG BASE
Dosage Form/Route: FOR SUSPENSION, TABLET;ORAL
Application: N050762 | Product #001
Applicant: PFIZER PHARMACEUTICALS INC
Approved: Dec 18, 1998 | RLD: No | RS: No | Type: DISCN